FAERS Safety Report 25133463 (Version 1)
Quarter: 2025Q1

REPORT INFORMATION
  Report Type: Spontaneous
  Country: US (occurrence: US)
  Receive Date: 20250328
  Receipt Date: 20250328
  Transmission Date: 20250409
  Serious: Yes (Other)
  Sender: GLENMARK
  Company Number: US-GLENMARK PHARMACEUTICALS-2025GMK097223

PATIENT

DRUGS (3)
  1. DILTIAZEM HYDROCHLORIDE [Suspect]
     Active Substance: DILTIAZEM HYDROCHLORIDE
     Indication: Blood pressure abnormal
     Dosage: 60 MILLIGRAM, BID (TWO CAPSULES A DAY, AFTER HAVING FOOD)
     Route: 048
  2. DILTIAZEM HYDROCHLORIDE [Suspect]
     Active Substance: DILTIAZEM HYDROCHLORIDE
     Dosage: 60 MILLIGRAM, BID (TWO CAPSULES A DAY, AFTER HAVING FOOD)
     Route: 048
  3. ELIQUIS [Concomitant]
     Active Substance: APIXABAN
     Indication: Product used for unknown indication
     Route: 065

REACTIONS (6)
  - Cerebrovascular accident [Unknown]
  - Feeling abnormal [Unknown]
  - Fatigue [Unknown]
  - Ill-defined disorder [Unknown]
  - Recalled product administered [Unknown]
  - Product quality issue [Unknown]
